FAERS Safety Report 9791352 (Version 12)
Quarter: 2014Q2

REPORT INFORMATION
  Report Type: Report from Study
  Country: CA (occurrence: CA)
  Receive Date: 20140101
  Receipt Date: 20140512
  Transmission Date: 20141212
  Serious: Yes (Hospitalization, Other)
  Sender: FDA-Public Use
  Company Number: CA-ROCHE-1284772

PATIENT
  Age: 56 Year
  Sex: Male
  Weight: 70 kg

DRUGS (15)
  1. AVASTIN [Suspect]
     Indication: ASTROCYTOMA
     Route: 042
     Dates: start: 20130912, end: 20140402
  2. AVASTIN [Suspect]
     Indication: GLIOBLASTOMA
  3. LOMUSTINE [Suspect]
     Indication: ASTROCYTOMA
     Route: 065
     Dates: end: 201402
  4. LOMUSTINE [Suspect]
     Indication: GLIOBLASTOMA
  5. ETOPOSIDE [Suspect]
     Indication: ASTROCYTOMA
     Route: 065
     Dates: end: 2014
  6. ETOPOSIDE [Suspect]
     Indication: GLIOBLASTOMA
  7. KEPPRA [Concomitant]
     Route: 065
  8. FOSAMAX [Concomitant]
     Route: 065
  9. FRISIUM [Concomitant]
     Route: 065
  10. ACETYLSALICYLIC ACID [Concomitant]
     Route: 065
  11. DECADRON [Concomitant]
     Route: 065
     Dates: start: 20130810
  12. MAGIC MOUTHWASH WITH NYSTATIN [Concomitant]
  13. TYLENOL #1 (CANADA) [Concomitant]
     Indication: PREMEDICATION
     Route: 048
     Dates: start: 20131017
  14. SOLU-MEDROL [Concomitant]
     Indication: PREMEDICATION
     Route: 042
     Dates: start: 20131017
  15. BENADRYL (CANADA) [Concomitant]
     Indication: PREMEDICATION
     Route: 048
     Dates: start: 20131017

REACTIONS (25)
  - Muscle spasms [Unknown]
  - Abdominal pain [Not Recovered/Not Resolved]
  - Convulsion [Unknown]
  - Arthralgia [Recovered/Resolved]
  - Pneumonia [Unknown]
  - Thrombosis [Unknown]
  - Rash [Recovering/Resolving]
  - Pruritus [Unknown]
  - Malignant neoplasm progression [Unknown]
  - Constipation [Recovered/Resolved]
  - Stomatitis [Recovering/Resolving]
  - Platelet count decreased [Not Recovered/Not Resolved]
  - Pyrexia [Unknown]
  - Oropharyngeal pain [Unknown]
  - Haemoglobin decreased [Unknown]
  - Back pain [Unknown]
  - Drug effect decreased [Unknown]
  - Body temperature decreased [Recovered/Resolved]
  - Nasopharyngitis [Recovered/Resolved]
  - Mobility decreased [Not Recovered/Not Resolved]
  - Fatigue [Not Recovered/Not Resolved]
  - Headache [Not Recovered/Not Resolved]
  - Pain [Not Recovered/Not Resolved]
  - Nausea [Not Recovered/Not Resolved]
  - Herpes zoster [Unknown]
